FAERS Safety Report 8977469 (Version 2)
Quarter: 2013Q1

REPORT INFORMATION
  Report Type: Spontaneous
  Country: DE (occurrence: DE)
  Receive Date: 20121220
  Receipt Date: 20130125
  Transmission Date: 20140127
  Serious: Yes (Hospitalization)
  Sender: FDA-Public Use
  Company Number: DE-ALEXION-A201202435

PATIENT
  Sex: Female

DRUGS (2)
  1. SOLIRIS 300MG [Suspect]
     Indication: HAEMOLYTIC URAEMIC SYNDROME
     Dosage: 900 MG, QW
     Route: 042
     Dates: start: 20121101, end: 201211
  2. SOLIRIS 300MG [Suspect]
     Dosage: 1200 MG, SINGLE
     Route: 042
     Dates: start: 201211, end: 201212

REACTIONS (2)
  - Lung infiltration [Unknown]
  - Sepsis [Unknown]
